FAERS Safety Report 9710031 (Version 3)
Quarter: 2014Q1

REPORT INFORMATION
  Report Type: Spontaneous
  Country: US (occurrence: US)
  Receive Date: 20131126
  Receipt Date: 20140130
  Transmission Date: 20141002
  Serious: Yes (Death)
  Sender: FDA-Public Use
  Company Number: US-CELGENEUS-163-20785-13103459

PATIENT
  Age: 78 Year
  Sex: Female

DRUGS (3)
  1. THALOMID [Suspect]
     Indication: PLASMA CELL MYELOMA
     Dosage: 200 MILLIGRAM
     Route: 048
     Dates: start: 201104
  2. THALOMID [Suspect]
     Dosage: 50MG-200MG
     Route: 048
     Dates: start: 201106
  3. THALOMID [Suspect]
     Dosage: 50 MILLIGRAM
     Route: 048
     Dates: start: 201203, end: 201309

REACTIONS (2)
  - Plasma cell myeloma [Fatal]
  - Dementia Alzheimer^s type [Fatal]
